FAERS Safety Report 9918558 (Version 1)
Quarter: 2014Q1

REPORT INFORMATION
  Report Type: Spontaneous
  Country: US (occurrence: US)
  Receive Date: 20140224
  Receipt Date: 20140224
  Transmission Date: 20141002
  Serious: No
  Sender: FDA-Public Use
  Company Number: US-BIOGENIDEC-2014BI015284

PATIENT
  Age: 43 Year
  Sex: Male

DRUGS (7)
  1. TECFIDERA [Suspect]
     Indication: MULTIPLE SCLEROSIS
     Route: 048
     Dates: start: 201401, end: 201401
  2. TECFIDERA [Suspect]
     Indication: MULTIPLE SCLEROSIS
     Route: 048
     Dates: start: 201401, end: 20140211
  3. VITAMIN D3 [Concomitant]
  4. OMEGA FISH OIL [Concomitant]
  5. METOPROLOL [Concomitant]
  6. FENOFIBRATE [Concomitant]
  7. OMEPRAZOLE [Concomitant]

REACTIONS (4)
  - Abdominal distension [Recovered/Resolved]
  - Night sweats [Unknown]
  - Vomiting [Unknown]
  - Flushing [Recovered/Resolved]
